FAERS Safety Report 14999787 (Version 1)
Quarter: 2018Q2

REPORT INFORMATION
  Report Type: Spontaneous
  Country: US (occurrence: US)
  Receive Date: 20180523
  Receipt Date: 20180523
  Transmission Date: 20180711
  Serious: Yes (Death)
  Sender: FDA-Public Use
  Company Number: None

PATIENT
  Age: 74 Year
  Sex: Male
  Weight: 108 kg

DRUGS (18)
  1. ZYTIGA [Suspect]
     Active Substance: ABIRATERONE ACETATE
     Indication: PROSTATE CANCER
     Route: 048
     Dates: start: 20170719
  2. HYDROCODONE-ACETAMINOPHEN [Concomitant]
     Active Substance: ACETAMINOPHEN\HYDROCODONE
  3. LOSARTAN. [Concomitant]
     Active Substance: LOSARTAN
  4. LOW DOSE ASPIRIN [Concomitant]
     Active Substance: ASPIRIN
  5. FLAXSEED [Concomitant]
     Active Substance: FLAX SEED
  6. LUPRON [Concomitant]
     Active Substance: LEUPROLIDE ACETATE
  7. NOVOLOG [Concomitant]
     Active Substance: INSULIN ASPART
  8. TAMSULOSIN [Concomitant]
     Active Substance: TAMSULOSIN
  9. OXYCODONE [Concomitant]
     Active Substance: OXYCODONE
  10. PREDNISONE. [Concomitant]
     Active Substance: PREDNISONE
  11. FISH OIL EXTRACT [Concomitant]
  12. ACETAMINOPHEN EXTRA STRENGTH [Concomitant]
     Active Substance: ACETAMINOPHEN
  13. DICLOFENAC SODIUM. [Concomitant]
     Active Substance: DICLOFENAC SODIUM
  14. LANTUS SOLOSTAR [Concomitant]
     Active Substance: INSULIN GLARGINE
  15. GABAPENTIN. [Concomitant]
     Active Substance: GABAPENTIN
  16. METOPROLOL. [Concomitant]
     Active Substance: METOPROLOL
  17. METFORMIN [Concomitant]
     Active Substance: METFORMIN HYDROCHLORIDE
  18. SINGULAIR [Concomitant]
     Active Substance: MONTELUKAST SODIUM

REACTIONS (1)
  - Disease progression [None]
